FAERS Safety Report 6852348-9 (Version None)
Quarter: 2010Q3

REPORT INFORMATION
  Report Type: 
  Country: None (occurrence: None)
  Receive Date: 20100717
  Receipt Date: 20071115
  Transmission Date: 20110219
  Serious: No
  Sender: FDA-Public Use
  Company Number: US-PFIZER INC-2007096896

PATIENT
  Sex: Female
  Weight: 65.909 kg

DRUGS (7)
  1. CHANTIX [Suspect]
     Indication: SMOKING CESSATION THERAPY
     Dates: start: 20071001
  2. METHYLPHENIDATE HCL [Suspect]
     Indication: NARCOLEPSY
     Route: 062
  3. INDERAL [Concomitant]
  4. FLUOXETINE HCL [Concomitant]
     Indication: DEPRESSION
  5. SEROQUEL [Concomitant]
  6. NEXIUM [Concomitant]
     Indication: DYSPEPSIA
  7. CYANOCOBALAMIN [Concomitant]

REACTIONS (2)
  - ERYTHEMA [None]
  - WEIGHT INCREASED [None]
